FAERS Safety Report 23019320 (Version 3)
Quarter: 2023Q4

REPORT INFORMATION
  Report Type: Spontaneous
  Country: CA (occurrence: CA)
  Receive Date: 20231003
  Receipt Date: 20231115
  Transmission Date: 20240109
  Serious: Yes (Other)
  Sender: FDA-Public Use
  Company Number: CA-HLS-202001521

PATIENT
  Sex: Female

DRUGS (101)
  1. DIVALPROEX SODIUM [Concomitant]
     Active Substance: DIVALPROEX SODIUM
     Dosage: 1 DOSAGE FORM
     Route: 065
  2. DIVALPROEX SODIUM [Concomitant]
     Active Substance: DIVALPROEX SODIUM
     Indication: Product used for unknown indication
     Dosage: UNK
     Route: 065
  3. AMLODIPINE [Interacting]
     Active Substance: AMLODIPINE BESYLATE
     Indication: Product used for unknown indication
     Dosage: 1 DOSAGE FORM, QD
     Route: 065
  4. AMLODIPINE BESYLATE [Interacting]
     Active Substance: AMLODIPINE BESYLATE
     Dosage: 1 DF, QD
     Route: 065
  5. AMLODIPINE BESYLATE [Interacting]
     Active Substance: AMLODIPINE BESYLATE
     Indication: Product used for unknown indication
     Dosage: 1 DOSAGE FORM, QD
     Route: 065
  6. AMLODIPINE BESYLATE [Interacting]
     Active Substance: AMLODIPINE BESYLATE
     Dosage: 1 DOSAGE FORM, QD
     Route: 065
  7. ARIPIPRAZOLE [Interacting]
     Active Substance: ARIPIPRAZOLE
     Dosage: UNK
     Route: 065
  8. ARIPIPRAZOLE [Interacting]
     Active Substance: ARIPIPRAZOLE
     Dosage: UNK
     Route: 065
  9. ARIPIPRAZOLE [Interacting]
     Active Substance: ARIPIPRAZOLE
     Indication: Product used for unknown indication
     Dosage: UNK
     Route: 066
  10. ACETAMINOPHEN [Interacting]
     Active Substance: ACETAMINOPHEN
     Dosage: 2 DF
     Route: 065
  11. ACETAMINOPHEN [Interacting]
     Active Substance: ACETAMINOPHEN
     Dosage: UNK
     Route: 065
  12. ACETAMINOPHEN [Interacting]
     Active Substance: ACETAMINOPHEN
     Dosage: UNK
     Route: 065
  13. ACETAMINOPHEN [Interacting]
     Active Substance: ACETAMINOPHEN
     Dosage: UNK
     Route: 065
  14. ACETAMINOPHEN [Interacting]
     Active Substance: ACETAMINOPHEN
     Dosage: 2 DOSAGE FORM, Q12H
     Route: 065
  15. ACETAMINOPHEN [Interacting]
     Active Substance: ACETAMINOPHEN
     Indication: Pyrexia
     Dosage: 2 DOSAGE FORM, BID
     Route: 065
  16. ACETAMINOPHEN [Interacting]
     Active Substance: ACETAMINOPHEN
     Dosage: 2 DOSAGE FORM, BID
     Route: 065
  17. ACETAMINOPHEN [Interacting]
     Active Substance: ACETAMINOPHEN
     Dosage: 2 DF
     Route: 065
  18. ACETAMINOPHEN [Interacting]
     Active Substance: ACETAMINOPHEN
     Dosage: 2 DF
     Route: 065
  19. ACETAMINOPHEN [Interacting]
     Active Substance: ACETAMINOPHEN
     Indication: Pain
     Dosage: 3 DOSAGE FORM
     Route: 065
  20. ACETAMINOPHEN [Interacting]
     Active Substance: ACETAMINOPHEN
     Dosage: 3 DOSAGE FORM
     Route: 065
  21. ACETAMINOPHEN [Interacting]
     Active Substance: ACETAMINOPHEN
     Dosage: 3 DOSAGE FORM
     Route: 065
  22. ACETAMINOPHEN [Interacting]
     Active Substance: ACETAMINOPHEN
     Dosage: UNK
     Route: 065
  23. ACETAMINOPHEN [Interacting]
     Active Substance: ACETAMINOPHEN
     Dosage: UNK
     Route: 065
  24. ACETAMINOPHEN [Interacting]
     Active Substance: ACETAMINOPHEN
     Dosage: UNK
     Route: 065
  25. ALUMINUM HYDROXIDE [Interacting]
     Active Substance: ALUMINUM HYDROXIDE
     Dosage: UNK
     Route: 048
  26. ALUMINUM HYDROXIDE [Interacting]
     Active Substance: ALUMINUM HYDROXIDE
     Dosage: 30 ML
     Route: 048
  27. ALUMINUM HYDROXIDE [Interacting]
     Active Substance: ALUMINUM HYDROXIDE
     Indication: Abdominal discomfort
     Dosage: UNK
     Route: 048
  28. ALUMINUM HYDROXIDE [Interacting]
     Active Substance: ALUMINUM HYDROXIDE
     Dosage: UNK
     Route: 048
  29. AMLODIPINE MESYLATE [Interacting]
     Active Substance: AMLODIPINE MESYLATE
     Dosage: UNK
     Route: 065
  30. AMLODIPINE MESYLATE [Interacting]
     Active Substance: AMLODIPINE MESYLATE
     Indication: Product used for unknown indication
     Dosage: UNK
     Route: 065
  31. BREXPIPRAZOLE [Interacting]
     Active Substance: BREXPIPRAZOLE
     Indication: Product used for unknown indication
     Dosage: UNK
     Route: 065
  32. CLOZAPINE [Interacting]
     Active Substance: CLOZAPINE
     Dosage: 1 DF, QD
     Route: 065
  33. CLOZAPINE [Interacting]
     Active Substance: CLOZAPINE
     Dosage: 3 DF, QD
     Route: 065
  34. CLOZAPINE [Interacting]
     Active Substance: CLOZAPINE
     Dosage: 1 DOSAGE FORM
     Route: 065
  35. CLOZAPINE [Interacting]
     Active Substance: CLOZAPINE
     Indication: Product used for unknown indication
     Dosage: 1 DOSAGE FORM, QD
     Route: 065
  36. CLOZAPINE [Interacting]
     Active Substance: CLOZAPINE
     Dosage: 1 DOSAGE FORM, QD
     Route: 065
  37. CLOZAPINE [Interacting]
     Active Substance: CLOZAPINE
     Dosage: 3 DOSAGE FORM
     Route: 065
  38. CLOZAPINE [Interacting]
     Active Substance: CLOZAPINE
     Dosage: 3 DOSAGE FORM, QD
     Route: 065
  39. CLOZAPINE [Interacting]
     Active Substance: CLOZAPINE
     Dosage: UNK
     Route: 065
  40. CHOLECALCIFEROL [Interacting]
     Active Substance: CHOLECALCIFEROL
     Dosage: UNK
     Route: 065
  41. CHOLECALCIFEROL [Interacting]
     Active Substance: CHOLECALCIFEROL
     Dosage: 1 DOSAGE FORM
     Route: 065
  42. CHOLECALCIFEROL [Interacting]
     Active Substance: CHOLECALCIFEROL
     Indication: Product used for unknown indication
     Dosage: UNK
     Route: 065
  43. CLOTRIMAZOLE [Interacting]
     Active Substance: CLOTRIMAZOLE
     Indication: Rash
     Dosage: 2 DOSAGE FORM, QD
     Route: 065
  44. CLOTRIMAZOLE [Interacting]
     Active Substance: CLOTRIMAZOLE
     Dosage: UNK, BID
     Route: 065
  45. CLOTRIMAZOLE [Interacting]
     Active Substance: CLOTRIMAZOLE
     Dosage: UNK
     Route: 065
  46. CONJUGATED ESTROGENS [Interacting]
     Active Substance: ESTROGENS, CONJUGATED
     Dosage: UNK
     Route: 065
  47. CONJUGATED ESTROGENS [Interacting]
     Active Substance: ESTROGENS, CONJUGATED
     Dosage: 5 G
     Route: 065
  48. CONJUGATED ESTROGENS [Interacting]
     Active Substance: ESTROGENS, CONJUGATED
     Indication: Product used for unknown indication
     Dosage: UNK
     Route: 061
  49. CONJUGATED ESTROGENS [Interacting]
     Active Substance: ESTROGENS, CONJUGATED
     Dosage: UNK
     Route: 065
  50. DEPAKOTE [Interacting]
     Active Substance: DIVALPROEX SODIUM
     Indication: Product used for unknown indication
     Dosage: 2 DOSAGE FORM, QD
     Route: 065
  51. DIVIGEL [Interacting]
     Active Substance: ESTRADIOL
     Indication: Product used for unknown indication
     Dosage: UNK
     Route: 065
  52. ESTRADIOL [Interacting]
     Active Substance: ESTRADIOL
     Dosage: UNK
     Route: 067
  53. ESTRADIOL [Interacting]
     Active Substance: ESTRADIOL
     Dosage: 1 DF
     Route: 065
  54. ESTRADIOL [Interacting]
     Active Substance: ESTRADIOL
     Indication: Product used for unknown indication
     Dosage: 1 DOSAGE FORM
     Route: 067
  55. ESTRADIOL [Interacting]
     Active Substance: ESTRADIOL
     Dosage: 1 DOSAGE FORM
     Route: 067
  56. EPIVAL [Interacting]
     Active Substance: DIVALPROEX SODIUM
     Indication: Product used for unknown indication
     Dosage: UNK
     Route: 065
  57. ESTRADIOL BENZOATE [Interacting]
     Active Substance: ESTRADIOL BENZOATE
     Indication: Product used for unknown indication
     Dosage: UNK
     Route: 067
  58. FLUMIST QUADRIVALENT [Interacting]
     Active Substance: INFLUENZA A VIRUS A/CALIFORNIA/7/2009 (H1N1) LIVE(ATTENUATED) ANTIGEN\INFLUENZA A VIRUS A/TEXAS/50/2
     Dosage: UNK
     Route: 065
  59. FLUMIST QUADRIVALENT [Interacting]
     Active Substance: INFLUENZA A VIRUS A/CALIFORNIA/7/2009 (H1N1) LIVE(ATTENUATED) ANTIGEN\INFLUENZA A VIRUS A/TEXAS/50/2
     Indication: Prophylaxis
     Dosage: 0.2 ML PRE-FILLED SINGLE USE GLASS SPRAY
     Route: 065
  60. FLUMIST QUADRIVALENT [Interacting]
     Active Substance: INFLUENZA A VIRUS A/CALIFORNIA/7/2009 (H1N1) LIVE(ATTENUATED) ANTIGEN\INFLUENZA A VIRUS A/TEXAS/50/2
     Indication: Product used for unknown indication
     Dosage: UNK
     Route: 065
  61. FLUVIRAL [Interacting]
     Active Substance: INFLUENZA VIRUS VACCINE
     Indication: Product used for unknown indication
     Dosage: UNK
     Route: 065
  62. INFLUENZA VIRUS VACCINE [Interacting]
     Active Substance: INFLUENZA VIRUS VACCINE
     Dosage: 0.2 ML, LIVE REASSORT 3V INTRANASAL
     Route: 065
  63. INFLUENZA VIRUS VACCINE [Interacting]
     Active Substance: INFLUENZA VIRUS VACCINE
     Indication: Prophylaxis
     Dosage: UNK
     Route: 065
  64. INFLUENZA VIRUS VACCINE TRIVALENT TYPE A+B [Interacting]
     Active Substance: INFLUENZA VIRUS VACCINE TRIVALENT TYPE A+B
     Indication: Prophylaxis
     Dosage: UNK
     Route: 065
  65. LEVOTHYROXINE [Interacting]
     Active Substance: LEVOTHYROXINE
     Indication: Product used for unknown indication
     Dosage: 1 DOSAGE FORM
     Route: 065
  66. LEVOTHYROXINE SODIUM [Interacting]
     Active Substance: LEVOTHYROXINE SODIUM
     Indication: Product used for unknown indication
     Dosage: 1 DOSAGE FORM
     Route: 065
  67. LEVOTHYROXINE SODIUM [Interacting]
     Active Substance: LEVOTHYROXINE SODIUM
     Dosage: 1 DOSAGE FORM
     Route: 065
  68. LEVOTHYROXINE SODIUM [Interacting]
     Active Substance: LEVOTHYROXINE SODIUM
     Dosage: UNK
     Route: 065
  69. ESTRADIOL [Interacting]
     Active Substance: ESTRADIOL
     Indication: Product used for unknown indication
     Dosage: 1 DOSAGE FORM
     Route: 067
  70. MAALOX ANTACID [Interacting]
     Active Substance: ALUMINUM HYDROXIDE\DIMETHICONE\MAGNESIUM HYDROXIDE
     Indication: Abdominal discomfort
     Dosage: UNK
     Route: 065
  71. OLANZAPINE [Interacting]
     Active Substance: OLANZAPINE
     Dosage: UNK
     Route: 065
  72. OLANZAPINE [Interacting]
     Active Substance: OLANZAPINE
     Indication: Product used for unknown indication
     Dosage: 1 DOSAGE FORM, QD
     Route: 065
  73. OLANZAPINE [Interacting]
     Active Substance: OLANZAPINE
     Dosage: 1 DOSAGE FORM, BID
     Route: 065
  74. OLANZAPINE [Interacting]
     Active Substance: OLANZAPINE
     Dosage: 1 DOSAGE FORM, BID
     Route: 065
  75. OLANZAPINE [Interacting]
     Active Substance: OLANZAPINE
     Dosage: 1 DOSAGE FORM
     Route: 065
  76. OLANZAPINE [Interacting]
     Active Substance: OLANZAPINE
     Indication: Mood altered
     Dosage: 2 DOSAGE FORM, QD
     Route: 065
  77. OLANZAPINE [Interacting]
     Active Substance: OLANZAPINE
     Dosage: UNK
     Route: 065
  78. PHENYLEPHRINE HYDROCHLORIDE [Interacting]
     Active Substance: PHENYLEPHRINE HYDROCHLORIDE
     Indication: Product used for unknown indication
     Dosage: UNK
     Route: 065
  79. PREMARIN [Interacting]
     Active Substance: ESTROGENS, CONJUGATED
     Dosage: 0.5 G
     Route: 061
  80. PREMARIN [Interacting]
     Active Substance: ESTROGENS, CONJUGATED
     Indication: Product used for unknown indication
     Dosage: 5 G
     Route: 065
  81. PREMARIN [Interacting]
     Active Substance: ESTROGENS, CONJUGATED
     Dosage: UNK
     Route: 061
  82. PREMARIN [Interacting]
     Active Substance: ESTROGENS, CONJUGATED
     Dosage: UNK
     Route: 065
  83. RANITIDINE [Interacting]
     Active Substance: RANITIDINE
     Indication: Product used for unknown indication
     Dosage: 2 DOSAGE FORM, QD
     Route: 065
  84. RANITIDINE HYDROCHLORIDE [Interacting]
     Active Substance: RANITIDINE HYDROCHLORIDE
     Dosage: 150 MG
     Route: 065
  85. RANITIDINE HYDROCHLORIDE [Interacting]
     Active Substance: RANITIDINE HYDROCHLORIDE
     Indication: Product used for unknown indication
     Dosage: 1 DOSAGE FORM, BID
     Route: 065
  86. RANITIDINE HYDROCHLORIDE [Interacting]
     Active Substance: RANITIDINE HYDROCHLORIDE
     Dosage: 150 MG, BID
     Route: 065
  87. RANITIDINE HYDROCHLORIDE [Interacting]
     Active Substance: RANITIDINE HYDROCHLORIDE
     Dosage: 150 MG
     Route: 065
  88. RANITIDINE HYDROCHLORIDE [Interacting]
     Active Substance: RANITIDINE HYDROCHLORIDE
     Dosage: 2 DOSAGE FORM, QD
     Route: 065
  89. REXULTI [Interacting]
     Active Substance: BREXPIPRAZOLE
     Dosage: UNK
     Route: 065
  90. REXULTI [Interacting]
     Active Substance: BREXPIPRAZOLE
     Indication: Product used for unknown indication
     Dosage: UNK
     Route: 065
  91. VALPROATE SODIUM [Interacting]
     Active Substance: VALPROATE SODIUM
     Dosage: 1 DOSAGE FORM
     Route: 065
  92. VALPROATE SODIUM [Interacting]
     Active Substance: VALPROATE SODIUM
     Dosage: 1 DOSAGE FORM, BID
     Route: 065
  93. VALPROATE SODIUM [Interacting]
     Active Substance: VALPROATE SODIUM
     Indication: Product used for unknown indication
     Dosage: 2 DOSAGE FORM, QD
     Route: 065
  94. VALPROATE SODIUM [Interacting]
     Active Substance: VALPROATE SODIUM
     Dosage: 2 DOSAGE FORM, QD
     Route: 065
  95. VALPROATE SODIUM [Interacting]
     Active Substance: VALPROATE SODIUM
     Dosage: UNK
     Route: 065
  96. VALPROIC ACID [Interacting]
     Active Substance: VALPROIC ACID
     Dosage: UNK
     Route: 065
  97. VALPROIC ACID [Interacting]
     Active Substance: VALPROIC ACID
     Indication: Product used for unknown indication
     Dosage: UNK
     Route: 065
  98. VITAMIN D3 [Interacting]
     Active Substance: CHOLECALCIFEROL
     Indication: Product used for unknown indication
     Dosage: 1 DOSAGE FORM
     Route: 065
  99. VITAMIN D3 [Interacting]
     Active Substance: CHOLECALCIFEROL
     Dosage: UNK
     Route: 065
  100. ZOPICLONE [Interacting]
     Active Substance: ZOPICLONE
     Dosage: 1 DF, QD
     Route: 048
  101. ZOPICLONE [Interacting]
     Active Substance: ZOPICLONE
     Indication: Insomnia
     Dosage: 1 DOSAGE FORM, QD
     Route: 048

REACTIONS (10)
  - Insomnia [Not Recovered/Not Resolved]
  - Schizoaffective disorder [Unknown]
  - Pain [Not Recovered/Not Resolved]
  - Sinus rhythm [Unknown]
  - Pyrexia [Not Recovered/Not Resolved]
  - Abdominal discomfort [Not Recovered/Not Resolved]
  - Electrocardiogram QT prolonged [Unknown]
  - Product use issue [Unknown]
  - Drug level increased [Unknown]
  - Drug interaction [Unknown]
